FAERS Safety Report 9116067 (Version 1)
Quarter: 2013Q1

REPORT INFORMATION
  Report Type: Spontaneous
  Country: DK (occurrence: GB)
  Receive Date: 20130225
  Receipt Date: 20130225
  Transmission Date: 20140127
  Serious: Yes (Other)
  Sender: FDA-Public Use
  Company Number: GB-FRI-1000042835

PATIENT
  Sex: Male

DRUGS (1)
  1. CITALOPRAM [Suspect]
     Route: 048

REACTIONS (5)
  - Anxiety [Unknown]
  - Food craving [Unknown]
  - Irritability [Unknown]
  - Myalgia [Unknown]
  - Fatigue [Unknown]
